FAERS Safety Report 5690715-X (Version None)
Quarter: 2008Q2

REPORT INFORMATION
  Report Type: 
  Country: None (occurrence: None)
  Receive Date: 20080401
  Receipt Date: 20080331
  Transmission Date: 20081010
  Serious: Yes (Hospitalization)
  Sender: FDA-Public Use
  Company Number: A0718301A

PATIENT
  Age: 47 Year
  Sex: Male
  Weight: 118 kg

DRUGS (3)
  1. ALLI [Suspect]
     Indication: WEIGHT CONTROL
     Dates: start: 20070905, end: 20071102
  2. ASPIRIN [Concomitant]
  3. COZAAR [Concomitant]

REACTIONS (8)
  - CHEST PAIN [None]
  - HEADACHE [None]
  - HYPERHIDROSIS [None]
  - MYOCARDIAL INFARCTION [None]
  - NAUSEA [None]
  - PHARMACEUTICAL PRODUCT COMPLAINT [None]
  - THROMBOSIS [None]
  - VOMITING [None]
